FAERS Safety Report 17731646 (Version 2)
Quarter: 2020Q2

REPORT INFORMATION
  Report Type: Report from Study
  Country: DE (occurrence: DE)
  Receive Date: 20200501
  Receipt Date: 20200515
  Transmission Date: 20200714
  Serious: Yes (Other)
  Sender: FDA-Public Use
  Company Number: DE-TAKEDA-2020TUS020480

PATIENT
  Age: 57 Year
  Sex: Female

DRUGS (18)
  1. PROLIA [Concomitant]
     Active Substance: DENOSUMAB
     Dosage: 60 MILLIGRAM, Q6MONTHS
  2. COLESTYRAMIN [Concomitant]
     Active Substance: CHOLESTYRAMINE
     Dosage: 4 GRAM, QD
  3. DEKRISTOL [Concomitant]
     Active Substance: CHOLECALCIFEROL
     Dosage: UNK, 1/WEEK
  4. ALFACALCIDOL [Concomitant]
     Active Substance: ALFACALCIDOL
     Dosage: 0.25 MICROGRAM, QD
  5. FOLATE [Concomitant]
     Active Substance: FOLATE SODIUM
     Dosage: UNK
  6. PENICILLIN                         /00000901/ [Concomitant]
     Active Substance: PENICILLIN G
     Dosage: UNK
  7. VITAMIN B6 [Concomitant]
     Active Substance: PYRIDOXINE HYDROCHLORIDE
     Dosage: UNK
  8. RAMIPRIL. [Concomitant]
     Active Substance: RAMIPRIL
     Dosage: 5 MILLIGRAM, BID
  9. VALPROATE [Concomitant]
     Active Substance: VALPROIC ACID
     Dosage: 2100 MILLIGRAM, QD
  10. VEDOLIZUMAB [Suspect]
     Active Substance: VEDOLIZUMAB
     Indication: CROHN^S DISEASE
     Dosage: 300 MILLIGRAM, Q4WEEKS
     Route: 042
     Dates: start: 20180730, end: 20180910
  11. DOXAZOSIN [Concomitant]
     Active Substance: DOXAZOSIN MESYLATE
     Dosage: 2.43 MILLIGRAM, QD
  12. ARANESP [Concomitant]
     Active Substance: DARBEPOETIN ALFA
     Dosage: 100 MICROGRAM, Q2WEEKS
  13. BICANORM [Concomitant]
     Active Substance: SODIUM BICARBONATE
     Dosage: 5 GRAM, QD
  14. AZOPT [Concomitant]
     Active Substance: BRINZOLAMIDE
     Dosage: UNK UNK, QD
  15. VITAMIN B12 [Concomitant]
     Active Substance: CYANOCOBALAMIN
     Dosage: UNK
  16. VEDOLIZUMAB [Suspect]
     Active Substance: VEDOLIZUMAB
     Dosage: 300 MILLIGRAM, Q4WEEKS
     Route: 042
     Dates: start: 20181105
  17. METOPROLOL. [Concomitant]
     Active Substance: METOPROLOL
     Dosage: UNK, BID
  18. PANTOPRAZOL [Concomitant]
     Active Substance: PANTOPRAZOLE SODIUM
     Dosage: 40 MILLIGRAM, QD

REACTIONS (2)
  - Bowen^s disease [Recovered/Resolved]
  - Anaemia vitamin B12 deficiency [Recovered/Resolved]

NARRATIVE: CASE EVENT DATE: 20191009
